FAERS Safety Report 17257197 (Version 1)
Quarter: 2020Q1

REPORT INFORMATION
  Report Type: Spontaneous
  Country: US (occurrence: US)
  Receive Date: 20200109
  Receipt Date: 20200109
  Transmission Date: 20200409
  Serious: Yes (Death)
  Sender: FDA-Public Use
  Company Number: None

PATIENT
  Age: 51 Year
  Sex: Female
  Weight: 45 kg

DRUGS (17)
  1. SUMMITRPTAN [Concomitant]
  2. ZOLOFT [Concomitant]
     Active Substance: SERTRALINE HYDROCHLORIDE
  3. XANAX [Concomitant]
     Active Substance: ALPRAZOLAM
  4. OMEPRAZOLE. [Concomitant]
     Active Substance: OMEPRAZOLE
  5. ACETAMINOPHEN. [Concomitant]
     Active Substance: ACETAMINOPHEN
  6. IV METHYLPREDNISOLONE [Suspect]
     Active Substance: METHYLPREDNISOLONE
     Indication: BRONCHITIS
     Dosage: ?          QUANTITY:1 INJECTION(S);?
     Route: 042
     Dates: start: 20190203, end: 20190203
  7. MONTELUKAST [Concomitant]
     Active Substance: MONTELUKAST SODIUM
  8. ALBUTEROL. [Concomitant]
     Active Substance: ALBUTEROL
  9. FLOVENT [Concomitant]
     Active Substance: FLUTICASONE PROPIONATE
  10. PROGESTERONE. [Concomitant]
     Active Substance: PROGESTERONE
  11. AMBIEN [Concomitant]
     Active Substance: ZOLPIDEM TARTRATE
  12. ALLERGY GENERIC [Concomitant]
  13. ZITHROMAX [Concomitant]
     Active Substance: AZITHROMYCIN DIHYDRATE
  14. DHEA [Concomitant]
     Active Substance: PRASTERONE
  15. IV METHYLPREDNISOLONE [Suspect]
     Active Substance: METHYLPREDNISOLONE
     Indication: DYSPNOEA
     Dosage: ?          QUANTITY:1 INJECTION(S);?
     Route: 042
     Dates: start: 20190203, end: 20190203
  16. PREDNISOLONE. [Concomitant]
     Active Substance: PREDNISOLONE
  17. VITAMIN B12 , C  ,D [Concomitant]

REACTIONS (3)
  - Completed suicide [None]
  - Substance-induced psychotic disorder [None]
  - Anxiety [None]
